FAERS Safety Report 10897841 (Version 1)
Quarter: 2015Q1

REPORT INFORMATION
  Report Type: Spontaneous
  Country: US (occurrence: None)
  Receive Date: 20150302
  Receipt Date: 20150302
  Transmission Date: 20150721
  Serious: No
  Sender: FDA-Public Use
  Company Number: None

PATIENT
  Age: 56 Year
  Sex: Female

DRUGS (1)
  1. HARVONI [Suspect]
     Active Substance: LEDIPASVIR\SOFOSBUVIR
     Indication: HEPATITIS C
     Dosage: ONE TABLET
     Route: 048
     Dates: start: 20150206

REACTIONS (3)
  - Fatigue [None]
  - Fungal infection [None]
  - Headache [None]

NARRATIVE: CASE EVENT DATE: 20150205
